FAERS Safety Report 22163820 (Version 2)
Quarter: 2023Q2

REPORT INFORMATION
  Report Type: Report from Study
  Country: MX (occurrence: MX)
  Receive Date: 20230401
  Receipt Date: 20230427
  Transmission Date: 20230722
  Serious: Yes (Other)
  Sender: FDA-Public Use
  Company Number: MX-002147023-NVSC2023MX074309

PATIENT
  Age: 4 Year
  Sex: Female
  Weight: 17 kg

DRUGS (2)
  1. OMNITROPE [Suspect]
     Active Substance: SOMATROPIN
     Indication: Short stature
     Dosage: 0.4 MG, QD
     Route: 058
     Dates: start: 20230113, end: 202303
  2. OMNITROPE [Suspect]
     Active Substance: SOMATROPIN
     Dosage: 0.5 MG, QD, SUREPAL (GREEN PEN)
     Route: 058
     Dates: start: 202303

REACTIONS (3)
  - Suspected product contamination [Recovered/Resolved]
  - Tonsillitis [Recovering/Resolving]
  - Poor quality product administered [Recovered/Resolved]

NARRATIVE: CASE EVENT DATE: 20230201
